FAERS Safety Report 9325342 (Version 2)
Quarter: 2013Q3

REPORT INFORMATION
  Report Type: Spontaneous
  Country: US (occurrence: US)
  Receive Date: 20130604
  Receipt Date: 20130731
  Transmission Date: 20140515
  Serious: No
  Sender: FDA-Public Use
  Company Number: US-BIOGENIDEC-2013BI049238

PATIENT
  Sex: Female

DRUGS (27)
  1. TYSABRI [Suspect]
     Indication: MULTIPLE SCLEROSIS
     Route: 042
     Dates: start: 20070713, end: 20080429
  2. TYSABRI [Suspect]
     Indication: MULTIPLE SCLEROSIS
     Route: 042
     Dates: start: 20130517
  3. ACCUPRIL [Concomitant]
     Indication: HYPERTENSION
  4. HUMALOG [Concomitant]
     Indication: TYPE 1 DIABETES MELLITUS
  5. RITALIN [Concomitant]
     Indication: FATIGUE
  6. RITALIN [Concomitant]
     Indication: FATIGUE
  7. SYNTHROID [Concomitant]
     Indication: HYPOTHYROIDISM
  8. LIPITOR [Concomitant]
     Indication: HYPERCHOLESTEROLAEMIA
  9. REQUIP [Concomitant]
     Indication: RESTLESS LEGS SYNDROME
  10. REQUIP [Concomitant]
     Indication: RESTLESS LEGS SYNDROME
  11. HYDROCHLOROTHIAZIDE [Concomitant]
  12. MECLOZINE [Concomitant]
     Indication: DIZZINESS
  13. DARVOCET [Concomitant]
     Indication: MIGRAINE
  14. GABAPENTIN [Concomitant]
     Indication: BACK PAIN
  15. GABAPENTIN [Concomitant]
     Indication: BACK PAIN
  16. QUINAPRIL [Concomitant]
  17. QUINAPRIL [Concomitant]
  18. VYTORIN [Concomitant]
  19. LANTUS [Concomitant]
     Indication: TYPE 1 DIABETES MELLITUS
  20. HUMULIN R [Concomitant]
     Indication: TYPE 1 DIABETES MELLITUS
  21. FOSAMAX [Concomitant]
  22. PREMARIN [Concomitant]
  23. PREVACID [Concomitant]
  24. VITAMIN D [Concomitant]
  25. DOCUSATE [Concomitant]
  26. ASPIRIN [Concomitant]
  27. IBUPROFEN [Concomitant]

REACTIONS (7)
  - Oedema peripheral [Recovered/Resolved]
  - Cough [Unknown]
  - Diabetic neuropathy [Unknown]
  - Optic neuropathy [Unknown]
  - Blood glucose abnormal [Recovered/Resolved]
  - Drug ineffective [Unknown]
  - Chest discomfort [Unknown]
